FAERS Safety Report 15900493 (Version 1)
Quarter: 2019Q1

REPORT INFORMATION
  Report Type: Spontaneous
  Country: US (occurrence: US)
  Receive Date: 20190110
  Receipt Date: 20190110
  Transmission Date: 20190417
  Serious: No
  Sender: FDA-Public Use
  Company Number: None

PATIENT
  Age: 54 Year
  Sex: Female

DRUGS (2)
  1. COPAXONE [Suspect]
     Active Substance: GLATIRAMER ACETATE
     Dates: start: 201812
  2. ORENCIA [Suspect]
     Active Substance: ABATACEPT
     Dates: start: 201607

REACTIONS (2)
  - Lymphadenopathy [None]
  - Ear infection [None]

NARRATIVE: CASE EVENT DATE: 20190109
